FAERS Safety Report 17819277 (Version 8)
Quarter: 2020Q4

REPORT INFORMATION
  Report Type: Report from Study
  Country: IL (occurrence: IL)
  Receive Date: 20200523
  Receipt Date: 20201127
  Transmission Date: 20210113
  Serious: Yes (Death, Hospitalization, Other)
  Sender: FDA-Public Use
  Company Number: NVSC2020IL139674

PATIENT
  Age: 4 Month
  Sex: Female
  Weight: 5.9 kg

DRUGS (1)
  1. ZOLGENSMA [Suspect]
     Active Substance: ONASEMNOGENE ABEPARVOVEC-XIOI
     Indication: SPINAL MUSCULAR ATROPHY
     Dosage: 33 ML, ONCE/SINGLE
     Route: 042
     Dates: start: 20200514

REACTIONS (20)
  - Pneumonia [Recovered/Resolved]
  - Pyrexia [Recovered/Resolved]
  - Rales [Unknown]
  - Asthenia [Not Recovered/Not Resolved]
  - Respiratory failure [Fatal]
  - Lung infiltration [Unknown]
  - Respiratory distress [Not Recovered/Not Resolved]
  - Parvovirus infection [Unknown]
  - Hyporeflexia [Unknown]
  - Drug ineffective [Unknown]
  - Pyrexia [Recovered/Resolved]
  - Vomiting [Recovered/Resolved]
  - Head lag [Unknown]
  - Atelectasis [Unknown]
  - Dyspnoea [Unknown]
  - Respiratory disorder [Recovering/Resolving]
  - Adenovirus infection [Unknown]
  - Diarrhoea [Recovered/Resolved]
  - Deformity thorax [Unknown]
  - Tachypnoea [Unknown]

NARRATIVE: CASE EVENT DATE: 20200515
